FAERS Safety Report 7445986-6 (Version None)
Quarter: 2011Q2

REPORT INFORMATION
  Report Type: 
  Country: None (occurrence: None)
  Receive Date: 20110429
  Receipt Date: 20110428
  Transmission Date: 20111010
  Serious: Yes (Life-Threatening, Hospitalization)
  Sender: FDA-Public Use
  Company Number: US-B.I. PHARMACEUTICALS,INC./RIDGEFIELD-2011-BP-10804BP

PATIENT
  Sex: Male

DRUGS (11)
  1. QUINAPRIL [Concomitant]
  2. PRADAXA [Suspect]
     Dates: end: 20110414
  3. LANTUS [Concomitant]
  4. ZOCOR [Concomitant]
  5. DIGOXIN [Concomitant]
  6. METFORMIN [Concomitant]
  7. LORATADINE [Concomitant]
  8. GLIMEPIRIDE [Concomitant]
  9. LOPRESSOR [Concomitant]
  10. LOPID [Concomitant]
  11. ZETIA [Concomitant]

REACTIONS (3)
  - GASTROINTESTINAL HAEMORRHAGE [None]
  - ULCER [None]
  - OESOPHAGEAL STENOSIS [None]
